APPROVED DRUG PRODUCT: VANCOLED
Active Ingredient: VANCOMYCIN HYDROCHLORIDE
Strength: EQ 5GM BASE/VIAL **Federal Register determination that product was not discontinued or withdrawn for safety or effectiveness reasons**
Dosage Form/Route: INJECTABLE;INJECTION
Application: A062682 | Product #004
Applicant: HIKMA PHARMACEUTICALS USA INC
Approved: May 11, 1988 | RLD: No | RS: No | Type: DISCN